FAERS Safety Report 9666017 (Version 1)
Quarter: 2013Q4

REPORT INFORMATION
  Report Type: Spontaneous
  Country: US (occurrence: None)
  Receive Date: 20131031
  Receipt Date: 20131031
  Transmission Date: 20140711
  Serious: Yes (Other)
  Sender: FDA-Public Use
  Company Number: SYM-2013-11696

PATIENT
  Age: 81 Year
  Sex: Female

DRUGS (3)
  1. FLUOROURACIL (FLUOROURACIL) [Suspect]
     Indication: ACTINIC KERATOSIS
     Route: 061
  2. PREDNISONE (PREDNISONE) [Suspect]
     Indication: RHEUMATOID ARTHRITIS
  3. METHOTREXATE (METHOTREXATE) [Suspect]
     Indication: RHEUMATOID ARTHRITIS

REACTIONS (8)
  - Dermatitis contact [None]
  - Eczema herpeticum [None]
  - Candida infection [None]
  - Serratia infection [None]
  - Pruritus [None]
  - Epidermal necrosis [None]
  - Burning sensation [None]
  - Superinfection [None]
